FAERS Safety Report 7048044-8 (Version None)
Quarter: 2010Q4

REPORT INFORMATION
  Report Type: 
  Country: None (occurrence: None)
  Receive Date: 20101015
  Receipt Date: 20101006
  Transmission Date: 20110411
  Serious: Yes (Death, Hospitalization)
  Sender: FDA-Public Use
  Company Number: A0886856A

PATIENT
  Age: 67 Year
  Sex: Male

DRUGS (1)
  1. AVANDAMET [Suspect]
     Dosage: 4MG UNKNOWN
     Route: 048
     Dates: end: 20051029

REACTIONS (1)
  - MYOCARDIAL INFARCTION [None]
